FAERS Safety Report 22245203 (Version 1)
Quarter: 2023Q2

REPORT INFORMATION
  Report Type: Report from Study
  Country: IN (occurrence: IN)
  Receive Date: 20230424
  Receipt Date: 20230424
  Transmission Date: 20230722
  Serious: Yes (Other)
  Sender: FDA-Public Use
  Company Number: IN-002147023-NVSC2023IN088599

PATIENT
  Age: 43 Year
  Sex: Female

DRUGS (2)
  1. SIMULECT [Suspect]
     Active Substance: BASILIXIMAB
     Indication: Renal transplant
     Dosage: UNK
     Route: 065
     Dates: start: 20230331, end: 20230331
  2. SIMULECT [Suspect]
     Active Substance: BASILIXIMAB
     Dosage: UNK (FOURTH DAY)
     Route: 065
     Dates: start: 20230403, end: 20230403

REACTIONS (1)
  - Kidney transplant rejection [Recovered/Resolved]

NARRATIVE: CASE EVENT DATE: 20230403
